FAERS Safety Report 12400780 (Version 7)
Quarter: 2020Q1

REPORT INFORMATION
  Report Type: Spontaneous
  Country: US (occurrence: US)
  Receive Date: 20160525
  Receipt Date: 20200212
  Transmission Date: 20200409
  Serious: Yes (Other)
  Sender: FDA-Public Use
  Company Number: US-SA-2015SA121325

PATIENT
  Age: 63 Year
  Sex: Male

DRUGS (11)
  1. LANTUS SOLOSTAR [Suspect]
     Active Substance: INSULIN GLARGINE
     Dosage: 18 DF,HS
     Route: 051
     Dates: start: 2015
  2. METFORMIN [Concomitant]
     Active Substance: METFORMIN HYDROCHLORIDE
     Dosage: 2000 MG,BID
     Route: 065
  3. LANTUS SOLOSTAR [Suspect]
     Active Substance: INSULIN GLARGINE
     Dosage: 15 DF,HS
     Route: 051
     Dates: start: 201505
  4. LANTUS SOLOSTAR [Suspect]
     Active Substance: INSULIN GLARGINE
     Dosage: 43 IU
     Route: 065
  5. LANTUS SOLOSTAR [Suspect]
     Active Substance: INSULIN GLARGINE
     Indication: TYPE 2 DIABETES MELLITUS
     Dosage: 36 DF,QD
     Route: 051
     Dates: start: 2014
  6. LANTUS SOLOSTAR [Suspect]
     Active Substance: INSULIN GLARGINE
     Dosage: 21 DF,HS
     Route: 051
     Dates: start: 20151117
  7. NOVOLOG [Concomitant]
     Active Substance: INSULIN ASPART
     Dosage: UNK UNK,UNK
     Route: 065
  8. HUMALOG [Concomitant]
     Active Substance: INSULIN LISPRO
     Dosage: UNK
     Route: 065
  9. LANTUS SOLOSTAR [Suspect]
     Active Substance: INSULIN GLARGINE
     Dosage: 26 DF,QD
     Route: 051
  10. LANTUS SOLOSTAR [Suspect]
     Active Substance: INSULIN GLARGINE
     Dosage: 25 DF,HS
     Route: 051
  11. VICTOZA [Concomitant]
     Active Substance: LIRAGLUTIDE
     Dosage: UNK
     Route: 065

REACTIONS (23)
  - Pancreatic enlargement [Unknown]
  - Pain [Unknown]
  - Infection [Unknown]
  - Arthralgia [Unknown]
  - Abdominal distension [Unknown]
  - Abdominal pain [Unknown]
  - Hepatomegaly [Unknown]
  - Weight increased [Unknown]
  - Glycosylated haemoglobin increased [Recovering/Resolving]
  - Blood glucose increased [Unknown]
  - Product storage error [Unknown]
  - Drug ineffective [Recovering/Resolving]
  - Diverticulitis [Unknown]
  - Blood glucose decreased [Unknown]
  - Gait disturbance [Unknown]
  - Influenza [Unknown]
  - Intervertebral disc degeneration [Unknown]
  - Malaise [Unknown]
  - Wrong technique in product usage process [Unknown]
  - Constipation [Unknown]
  - Blood glucose increased [Unknown]
  - Cholecystectomy [Unknown]
  - Abdominal pain upper [Unknown]

NARRATIVE: CASE EVENT DATE: 2015
